FAERS Safety Report 11544444 (Version 1)
Quarter: 2015Q3

REPORT INFORMATION
  Report Type: Spontaneous
  Country: US (occurrence: US)
  Receive Date: 20150924
  Receipt Date: 20150924
  Transmission Date: 20151125
  Serious: No
  Sender: FDA-Public Use
  Company Number: US-PFIZER INC-2015311168

PATIENT
  Sex: Female

DRUGS (5)
  1. ACTEMRA [Suspect]
     Active Substance: TOCILIZUMAB
  2. RITUXAN [Suspect]
     Active Substance: RITUXIMAB
  3. HUMIRA [Suspect]
     Active Substance: ADALIMUMAB
  4. XELJANZ [Suspect]
     Active Substance: TOFACITINIB CITRATE
  5. ENBREL [Suspect]
     Active Substance: ETANERCEPT
     Dosage: UNK

REACTIONS (3)
  - Drug ineffective [Unknown]
  - Blood creatinine increased [Unknown]
  - Condition aggravated [Unknown]
